FAERS Safety Report 5122597-9 (Version None)
Quarter: 2006Q4

REPORT INFORMATION
  Report Type: 
  Country: None (occurrence: None)
  Receive Date: 20061004
  Receipt Date: 20060925
  Transmission Date: 20070319
  Serious: Yes (Other)
  Sender: FDA-Public Use
  Company Number: GXKR2006NL05995

PATIENT
  Age: 60 Year
  Sex: Female

DRUGS (4)
  1. AMOXICILLIN + CLAVULANTE  POTASSIUM (NGX) (AMOXICILLIN ,  CLAVULANTE) [Suspect]
     Indication: PNEUMONIA
     Dosage: 625 , TID, ORAL
     Route: 048
     Dates: start: 20060422, end: 20060429
  2. PREDNISOLONE [Concomitant]
  3. OMEPRAZOLE [Concomitant]
  4. BROMAZEPAM (BROMAZEPAM) [Concomitant]

REACTIONS (3)
  - HYPERHIDROSIS [None]
  - RESTLESSNESS [None]
  - TREMOR [None]
